FAERS Safety Report 7903654-8 (Version None)
Quarter: 2011Q4

REPORT INFORMATION
  Report Type: 
  Country: None (occurrence: None)
  Receive Date: 20111109
  Receipt Date: 20111102
  Transmission Date: 20120403
  Serious: Yes (Other)
  Sender: FDA-Public Use
  Company Number: CA-SANOFI-AVENTIS-2011SA055217

PATIENT
  Age: 70 Year
  Sex: Female

DRUGS (8)
  1. ASPIRIN [Concomitant]
     Route: 048
  2. PLAVIX [Suspect]
     Route: 048
     Dates: start: 20060101, end: 20110818
  3. PLAVIX [Suspect]
     Route: 048
     Dates: start: 20110819
  4. PRILOSEC [Concomitant]
     Route: 048
  5. MONOPRIL [Concomitant]
     Route: 048
  6. ATIVAN [Concomitant]
     Route: 048
  7. METOPROLOL [Concomitant]
     Route: 048
  8. GLYBURIDE [Concomitant]
     Route: 048

REACTIONS (4)
  - TABLET PHYSICAL ISSUE [None]
  - BLOOD PRESSURE INADEQUATELY CONTROLLED [None]
  - DRUG INTOLERANCE [None]
  - PRODUCT QUALITY ISSUE [None]
